FAERS Safety Report 13660374 (Version 1)
Quarter: 2017Q2

REPORT INFORMATION
  Report Type: Spontaneous
  Country: US (occurrence: US)
  Receive Date: 20170616
  Receipt Date: 20170616
  Transmission Date: 20170830
  Serious: No
  Sender: FDA-Public Use
  Company Number: US-FDC LIMITED-2016RIS00122

PATIENT
  Age: 77 Year
  Sex: Female
  Weight: 101.59 kg

DRUGS (10)
  1. TYLENOL ARTHRITIS PAIN [Concomitant]
     Active Substance: ACETAMINOPHEN
     Dosage: 2 TABLETS, 2X/DAY
  2. SEMPREX D [Concomitant]
     Active Substance: ACRIVASTINE\PSEUDOEPHEDRINE HYDROCHLORIDE
     Dosage: 1 CAPSULES, 1X/DAY
  3. METOPROLOL. [Concomitant]
     Active Substance: METOPROLOL
     Dosage: UNK, 1X/DAY
  4. TRIAMTERENE-HCTZ [Concomitant]
     Active Substance: HYDROCHLOROTHIAZIDE\TRIAMTERENE
     Dosage: 1 DOSAGE UNITS, AS NEEDED
  5. TIMOLOL MALEATE. [Suspect]
     Active Substance: TIMOLOL MALEATE
     Indication: GLAUCOMA
     Dosage: 1 DROP, 2X/DAY
     Route: 047
     Dates: start: 20160528
  6. TEMAZEPAM. [Concomitant]
     Active Substance: TEMAZEPAM
     Dosage: 15 MG, 1X/DAY
  7. PANTOPRAZOLE [Concomitant]
     Active Substance: PANTOPRAZOLE
     Dosage: 40 MG, 1X/DAY
  8. VITAMIN D [Concomitant]
     Active Substance: CHOLECALCIFEROL
     Dosage: 1.25 MG, 2X/MONTH
  9. CLINDAMYCIN. [Concomitant]
     Active Substance: CLINDAMYCIN
  10. CENTRUM SILVER [Concomitant]
     Active Substance: MINERALS\VITAMINS

REACTIONS (4)
  - Lacrimation increased [Not Recovered/Not Resolved]
  - Instillation site irritation [Recovering/Resolving]
  - Instillation site pain [Recovering/Resolving]
  - Foreign body sensation in eyes [Recovering/Resolving]

NARRATIVE: CASE EVENT DATE: 201605
